FAERS Safety Report 6026314-X (Version None)
Quarter: 2008Q4

REPORT INFORMATION
  Report Type: 
  Country: None (occurrence: None)
  Receive Date: 20081230
  Receipt Date: 20081217
  Transmission Date: 20090506
  Serious: Yes (Hospitalization, Other)
  Sender: FDA-Public Use
  Company Number: PAR_02479_2008

PATIENT
  Age: 12 Month
  Sex: Male
  Weight: 7 kg

DRUGS (3)
  1. IBUPROFEN [Suspect]
     Indication: DRUG USE FOR UNKNOWN INDICATION
     Dosage: DF ORAL
     Route: 048
  2. MEROPENEM (MEROPENEM) [Suspect]
     Indication: DRUG USE FOR UNKNOWN INDICATION
     Dosage: 20 MG TID
  3. OXACILLIN [Concomitant]

REACTIONS (17)
  - ACTIVATED PARTIAL THROMBOPLASTIN TIME PROLONGED [None]
  - ANAEMIA [None]
  - BLOOD CULTURE POSITIVE [None]
  - CANDIDIASIS [None]
  - COAGULOPATHY [None]
  - CULTURE WOUND POSITIVE [None]
  - ENTEROBACTER INFECTION [None]
  - FACTOR X DEFICIENCY [None]
  - GASTROINTESTINAL HAEMORRHAGE [None]
  - GASTROINTESTINAL ISCHAEMIA [None]
  - HAEMORRHAGIC EROSIVE GASTRITIS [None]
  - INTERNATIONAL NORMALISED RATIO INCREASED [None]
  - MALNUTRITION [None]
  - PROTHROMBIN TIME PROLONGED [None]
  - SHOCK [None]
  - SKIN GRAFT [None]
  - THERMAL BURN [None]
